FAERS Safety Report 6046715-3 (Version None)
Quarter: 2009Q1

REPORT INFORMATION
  Report Type: 
  Country: None (occurrence: None)
  Receive Date: 20090122
  Receipt Date: 20090115
  Transmission Date: 20090719
  Serious: Yes (Hospitalization, Other)
  Sender: FDA-Public Use
  Company Number: PHHO2006US11449

PATIENT
  Sex: Female
  Weight: 69.7 kg

DRUGS (12)
  1. ERL 080A ERL+TAB [Suspect]
     Indication: RENAL TRANSPLANT
     Dosage: 720 MG, BID
     Route: 048
     Dates: start: 20051211
  2. NEORAL [Suspect]
     Indication: RENAL TRANSPLANT
     Dosage: 100 MG, BID
     Route: 048
     Dates: start: 20060518
  3. PREDNISONE [Concomitant]
     Indication: RENAL TRANSPLANT
  4. NORVASC [Concomitant]
  5. LIPITOR [Concomitant]
  6. NEURONTIN [Concomitant]
  7. MAGNESIUM OXIDE [Concomitant]
  8. LOPRESSOR [Concomitant]
  9. MULTI-VITAMINS [Concomitant]
  10. PROTONIX [Concomitant]
  11. COUMADIN [Concomitant]
  12. RITUXIMAB [Concomitant]
     Indication: LUPUS NEPHRITIS

REACTIONS (10)
  - CARDIAC ARREST [None]
  - CELLULITIS [None]
  - DERMATITIS CONTACT [None]
  - DISEASE PROGRESSION [None]
  - ERYTHEMA [None]
  - GLOMERULONEPHRITIS PROLIFERATIVE [None]
  - OEDEMA PERIPHERAL [None]
  - PULMONARY OEDEMA [None]
  - RENAL IMPAIRMENT [None]
  - SYSTEMIC LUPUS ERYTHEMATOSUS [None]
